FAERS Safety Report 19220427 (Version 1)
Quarter: 2021Q2

REPORT INFORMATION
  Report Type: Spontaneous
  Country: US (occurrence: US)
  Receive Date: 20210506
  Receipt Date: 20210506
  Transmission Date: 20210717
  Serious: No
  Sender: FDA-Public Use
  Company Number: US-TEVA-2021-US-1900245

PATIENT
  Age: 62 Year
  Sex: Male

DRUGS (3)
  1. AJOVY [Suspect]
     Active Substance: FREMANEZUMAB-VFRM
  2. COVID?19 VACCINE NOS. [Suspect]
     Active Substance: COVID-19 VACCINE NOS
     Route: 065
  3. AJOVY [Suspect]
     Active Substance: FREMANEZUMAB-VFRM
     Indication: MIGRAINE WITHOUT AURA
     Route: 065

REACTIONS (3)
  - Pyrexia [Unknown]
  - Feeling abnormal [Unknown]
  - Feeling cold [Unknown]
